FAERS Safety Report 5597291-0 (Version None)
Quarter: 2008Q1

REPORT INFORMATION
  Report Type: 
  Country: None (occurrence: None)
  Receive Date: 20080121
  Receipt Date: 20080114
  Transmission Date: 20080703
  Serious: Yes (Other)
  Sender: FDA-Public Use
  Company Number: US-ROCHE-540997

PATIENT
  Age: 21 Month
  Sex: Female
  Weight: 10.7 kg

DRUGS (1)
  1. TAMIFLU [Suspect]
     Dosage: DOSAGE FORM REPORTED AS 60 MG/5 ML SUSPENSION.  DOSE WAS 1/2 TEASPOON TWICE A DAY FOR 5 DAYS.  THE +
     Route: 048
     Dates: start: 20080104, end: 20080105

REACTIONS (1)
  - ABNORMAL BEHAVIOUR [None]
